FAERS Safety Report 7127844-X (Version None)
Quarter: 2010Q4

REPORT INFORMATION
  Report Type: 
  Country: None (occurrence: None)
  Receive Date: 20101029
  Receipt Date: 20100702
  Transmission Date: 20110411
  Serious: No
  Sender: FDA-Public Use
  Company Number: US-003111

PATIENT
  Sex: Male
  Weight: 92.5338 kg

DRUGS (8)
  1. DEGARELIX (240 MG, 80 MG) [Suspect]
     Indication: PROSTATE CANCER
     Dosage: 240 MG 1X SUBCUTANEOUS, 80 MG 1X/MONTH SUBCUTANEOUS)
     Route: 058
     Dates: start: 20100629, end: 20100629
  2. DEGARELIX (240 MG, 80 MG) [Suspect]
     Indication: PROSTATE CANCER
     Dosage: 240 MG 1X SUBCUTANEOUS, 80 MG 1X/MONTH SUBCUTANEOUS)
     Route: 058
     Dates: start: 20100727, end: 20100727
  3. LISINOPRIL [Concomitant]
  4. NORVASC [Concomitant]
  5. ASPIRIN [Concomitant]
  6. PRILOSEC [Concomitant]
  7. ZOCOR [Concomitant]
  8. TYLENOL (CAPLET) [Concomitant]

REACTIONS (1)
  - INJECTION SITE REACTION [None]
